FAERS Safety Report 18555377 (Version 2)
Quarter: 2020Q4

REPORT INFORMATION
  Report Type: Spontaneous
  Country: US (occurrence: US)
  Receive Date: 20201127
  Receipt Date: 20201207
  Transmission Date: 20210114
  Serious: No
  Sender: FDA-Public Use
  Company Number: US-NOVOPROD-721464

PATIENT
  Sex: Male

DRUGS (2)
  1. NOVOLIN R [Suspect]
     Active Substance: INSULIN HUMAN
     Indication: TYPE 2 DIABETES MELLITUS
     Dosage: 60 IU, QD
     Route: 058
     Dates: start: 201906, end: 20200101
  2. NOVOLIN 70/30 [Suspect]
     Active Substance: INSULIN HUMAN
     Indication: TYPE 2 DIABETES MELLITUS
     Dosage: 50 IU, QD
     Route: 058
     Dates: start: 201906, end: 20200101

REACTIONS (3)
  - Increased appetite [Unknown]
  - Pollakiuria [Unknown]
  - Diabetes mellitus inadequate control [Unknown]
